FAERS Safety Report 6866487-X (Version None)
Quarter: 2010Q2

REPORT INFORMATION
  Report Type: 
  Country: None (occurrence: None)
  Receive Date: 20100601
  Receipt Date: 20100406
  Transmission Date: 20101027
  Serious: Yes (Hospitalization)
  Sender: FDA-Public Use
  Company Number: WAES 1004USA00636

PATIENT
  Age: 66 Year
  Sex: Female

DRUGS (5)
  1. EMEND [Suspect]
     Indication: CHEMOTHERAPY
     Dosage: 2 MG/IV
     Route: 042
     Dates: start: 20100317
  2. EMEND [Suspect]
     Indication: PROPHYLACTIC CHEMOTHERAPY
     Dosage: 2 MG/IV
     Route: 042
     Dates: start: 20100317
  3. EMEND [Suspect]
     Indication: PROPHYLAXIS OF NAUSEA AND VOMITING
     Dosage: 2 MG/IV
     Route: 042
     Dates: start: 20100401, end: 20100401
  4. EMEND [Suspect]
     Indication: PROPHYLAXIS OF NAUSEA AND VOMITING
     Dosage: 125 MG/PO
     Route: 048
     Dates: start: 20100331, end: 20100331
  5. CORTICOSTEROIDS (UNSPECIFIED) [Concomitant]

REACTIONS (2)
  - ANAPHYLACTIC REACTION [None]
  - INAPPROPRIATE SCHEDULE OF DRUG ADMINISTRATION [None]
